FAERS Safety Report 11727489 (Version 1)
Quarter: 2015Q4

REPORT INFORMATION
  Report Type: Spontaneous
  Country: US (occurrence: US)
  Receive Date: 20151112
  Receipt Date: 20151112
  Transmission Date: 20160304
  Serious: Yes (Other)
  Sender: FDA-Public Use
  Company Number: US-PFIZER INC-2015369805

PATIENT
  Age: 42 Year
  Sex: Male

DRUGS (2)
  1. GABAPENTIN. [Suspect]
     Active Substance: GABAPENTIN
     Dosage: UP TO 5 TABLETS OF 300 MG
  2. QUETIAPINE [Interacting]
     Active Substance: QUETIAPINE
     Dosage: 3 TO 4 TABLETS OF 200 MG

REACTIONS (4)
  - Drug interaction [Unknown]
  - Sedation [Unknown]
  - Euphoric mood [Unknown]
  - Drug abuse [Unknown]
